FAERS Safety Report 22048796 (Version 5)
Quarter: 2023Q2

REPORT INFORMATION
  Report Type: Spontaneous
  Country: CO (occurrence: CO)
  Receive Date: 20230301
  Receipt Date: 20230425
  Transmission Date: 20230722
  Serious: Yes (Other)
  Sender: FDA-Public Use
  Company Number: CO-GILEAD-2023-0618179

PATIENT
  Age: 29 Year
  Sex: Male

DRUGS (4)
  1. EPCLUSA [Suspect]
     Active Substance: SOFOSBUVIR\VELPATASVIR
     Indication: Hepatitis C
     Dosage: 400+100 MILLIGRAM
     Route: 065
  2. TENOFOVIR [Concomitant]
     Active Substance: TENOFOVIR
     Dosage: UNK
  3. EMTRICITABINE [Concomitant]
     Active Substance: EMTRICITABINE
     Dosage: UNK
  4. RILPIVIRINE [Concomitant]
     Active Substance: RILPIVIRINE
     Dosage: UNK

REACTIONS (2)
  - Hepatitis C [Unknown]
  - Drug ineffective [Unknown]
